FAERS Safety Report 23299513 (Version 1)
Quarter: 2023Q4

REPORT INFORMATION
  Report Type: Spontaneous
  Country: KR (occurrence: KR)
  Receive Date: 20231215
  Receipt Date: 20231215
  Transmission Date: 20240110
  Serious: Yes (Hospitalization, Other)
  Sender: FDA-Public Use
  Company Number: KR-SA-SAC20231130001196

PATIENT
  Age: 12 Year
  Sex: Female

DRUGS (30)
  1. PLAVIX [Suspect]
     Active Substance: CLOPIDOGREL BISULFATE
     Indication: Coronary artery disease
     Dosage: 75 MG, QD
     Route: 065
     Dates: start: 20190626
  2. PREDNISOLONE [Suspect]
     Active Substance: PREDNISOLONE
     Indication: Aortitis
     Dosage: 8 MG, Q12H
     Dates: start: 20191220, end: 20200206
  3. CALCIUM CARBONATE [Suspect]
     Active Substance: CALCIUM CARBONATE
     Indication: Gastrooesophageal reflux disease
     Dosage: UNK UNK, TOTAL
     Dates: start: 20190406
  4. CHOLECALCIFEROL [Suspect]
     Active Substance: CHOLECALCIFEROL
     Dosage: UNK, TOTAL
     Dates: start: 20190406
  5. CELECOXIB [Suspect]
     Active Substance: CELECOXIB
     Dosage: UNK UNK, TOTAL
     Dates: start: 20191123
  6. CYCLOPHOSPHAMIDE [Suspect]
     Active Substance: CYCLOPHOSPHAMIDE
     Dosage: UNK UNK, TOTAL
     Dates: start: 20191116
  7. CIMETIDINE [Suspect]
     Active Substance: CIMETIDINE
     Dosage: UNK UNK, TOTAL
     Dates: start: 20191123
  8. METHOTREXATE [Suspect]
     Active Substance: METHOTREXATE
     Dosage: UNK UNK, TOTAL
     Dates: start: 20190219, end: 20200206
  9. ASPIRIN [Suspect]
     Active Substance: ASPIRIN
     Dosage: UNK UNK, TOTAL
  10. DOXAZOSIN MESYLATE [Suspect]
     Active Substance: DOXAZOSIN MESYLATE
     Dosage: UNK
     Dates: start: 20200224
  11. AMLODIPINE BESYLATE [Suspect]
     Active Substance: AMLODIPINE BESYLATE
     Indication: Coronary artery disease
     Dosage: UNK
     Dates: start: 20200629
  12. SULFAMETHOXAZOLE\TRIMETHOPRIM [Suspect]
     Active Substance: SULFAMETHOXAZOLE\TRIMETHOPRIM
     Dosage: UNK
     Dates: start: 20200221
  13. CARVEDILOL [Suspect]
     Active Substance: CARVEDILOL
     Dosage: UNK
     Dates: start: 20200208
  14. INDAPAMIDE [Suspect]
     Active Substance: INDAPAMIDE
     Dosage: UNK
     Dates: start: 20200208
  15. CEFTRIAXONE SODIUM [Suspect]
     Active Substance: CEFTRIAXONE SODIUM
     Dosage: UNK
     Dates: start: 20200626, end: 20200710
  16. ACETAMINOPHEN [Suspect]
     Active Substance: ACETAMINOPHEN
     Dosage: UNK
     Dates: start: 20200626
  17. SPIRONOLACTONE [Suspect]
     Active Substance: SPIRONOLACTONE
     Dosage: UNK
     Dates: start: 20200702
  18. ATENOLOL [Suspect]
     Active Substance: ATENOLOL
     Indication: Angina pectoris
     Dosage: UNK
     Dates: start: 20200706
  19. ENALAPRIL MALEATE [Suspect]
     Active Substance: ENALAPRIL MALEATE
     Dosage: UNK
     Dates: start: 20200625
  20. TRAMADOL HYDROCHLORIDE [Suspect]
     Active Substance: TRAMADOL HYDROCHLORIDE
     Dosage: UNK
     Dates: start: 20200625, end: 20200625
  21. ROSUVASTATIN CALCIUM [Suspect]
     Active Substance: ROSUVASTATIN CALCIUM
     Dosage: UNK
     Dates: start: 20190301
  22. SIMETHICONE (DIMETHICONE) [Suspect]
     Active Substance: DIMETHICONE
     Dosage: UNK
     Dates: start: 20200626, end: 20200626
  23. DOXYCYCLINE [Suspect]
     Active Substance: DOXYCYCLINE
     Dosage: UNK
     Dates: start: 20200629, end: 20200630
  24. LEVOCETIRIZINE [Suspect]
     Active Substance: LEVOCETIRIZINE
     Dosage: UNK
     Dates: start: 20200710
  25. HEPARIN SODIUM [Suspect]
     Active Substance: HEPARIN SODIUM
     Dosage: UNK
     Dates: start: 20200710, end: 20200713
  26. AZATHIOPRINE [Concomitant]
     Active Substance: AZATHIOPRINE
     Dosage: UNK
     Dates: start: 20190806
  27. ESOMEPRAZOLE MAGNESIUM [Concomitant]
     Active Substance: ESOMEPRAZOLE MAGNESIUM
     Dosage: UNK
     Dates: start: 20200623, end: 20200629
  28. KETAMINE HYDROCHLORIDE [Concomitant]
     Active Substance: KETAMINE HYDROCHLORIDE
     Dosage: UNK
     Dates: start: 20200626, end: 20200626
  29. FLAVINE ADENINE DINUCLEOTIDE DISODIUM [Concomitant]
     Dosage: UNK
     Dates: start: 20200713, end: 20200713
  30. LIVER EXTRACT [Concomitant]
     Active Substance: MAMMAL LIVER
     Dosage: UNK
     Dates: start: 20200713, end: 20200713

REACTIONS (10)
  - Pneumonia [Unknown]
  - Renal artery stenosis [Unknown]
  - Gastrooesophageal reflux disease [Unknown]
  - White blood cell count decreased [Unknown]
  - Urine glucose/creatinine ratio increased [Unknown]
  - Blood creatinine increased [Unknown]
  - Blood urea increased [Unknown]
  - Vasculitis [Unknown]
  - Blood pressure increased [Unknown]
  - C-reactive protein increased [Unknown]

NARRATIVE: CASE EVENT DATE: 20200206
